FAERS Safety Report 7553055-X (Version None)
Quarter: 2011Q2

REPORT INFORMATION
  Report Type: 
  Country: None (occurrence: None)
  Receive Date: 20110616
  Receipt Date: 20110614
  Transmission Date: 20111010
  Serious: Yes (Other)
  Sender: FDA-Public Use
  Company Number: FR-ALLERGAN-1108015US

PATIENT
  Age: 38 Year
  Sex: Male

DRUGS (2)
  1. FURADANTINE [Concomitant]
     Indication: ESCHERICHIA INFECTION
  2. BOTOX [Suspect]
     Indication: BLADDER DISORDER
     Dosage: 300 UNITS, SINGLE
     Route: 030
     Dates: start: 20100927, end: 20100927

REACTIONS (2)
  - SUBILEUS [None]
  - ANAL SPHINCTER ATONY [None]
